FAERS Safety Report 9493227 (Version 2)
Quarter: 2013Q3

REPORT INFORMATION
  Report Type: Report from Study
  Country: US (occurrence: US)
  Receive Date: 20130902
  Receipt Date: 20130906
  Transmission Date: 20140515
  Serious: Yes (Death)
  Sender: FDA-Public Use
  Company Number: PHEH2013US018426

PATIENT
  Age: 89 Year
  Sex: Male

DRUGS (6)
  1. GLEEVEC [Suspect]
     Indication: SOFT TISSUE CANCER
     Dosage: 400 MG, QD
     Route: 048
     Dates: start: 20080202
  2. MULTIGEN-AL [Concomitant]
     Dosage: UNK UKN, UNK
  3. DONEPEZIL [Concomitant]
     Dosage: UNK UKN, UNK
  4. NAMENDA [Concomitant]
     Dosage: UNK UKN, UNK
  5. LISINOPRIL [Concomitant]
     Dosage: UNK UKN, UNK
  6. FUROSEMIDE [Concomitant]
     Dosage: UNK UKN, UNK

REACTIONS (1)
  - Death [Fatal]
